FAERS Safety Report 5918096-4 (Version None)
Quarter: 2008Q4

REPORT INFORMATION
  Report Type: 
  Country: None (occurrence: None)
  Receive Date: 20081014
  Receipt Date: 20081004
  Transmission Date: 20090506
  Serious: Yes (Other)
  Sender: FDA-Public Use
  Company Number: US-PFIZER INC-2008084346

PATIENT
  Sex: Male
  Weight: 86.2 kg

DRUGS (3)
  1. CARDURA [Suspect]
     Indication: POLLAKIURIA
     Dates: end: 20081001
  2. DETROL LA [Suspect]
     Indication: POLLAKIURIA
     Dates: start: 20081002
  3. SEPTRA [Suspect]
     Indication: PROSTATITIS
     Dates: end: 20081001

REACTIONS (7)
  - ANAEMIA [None]
  - CYSTITIS INTERSTITIAL [None]
  - HAEMOGLOBIN DECREASED [None]
  - POLLAKIURIA [None]
  - PROSTATITIS [None]
  - RESPIRATORY TRACT INFECTION [None]
  - ULCER [None]
